FAERS Safety Report 21636230 (Version 4)
Quarter: 2023Q2

REPORT INFORMATION
  Report Type: Spontaneous
  Country: JP (occurrence: JP)
  Receive Date: 20221124
  Receipt Date: 20230409
  Transmission Date: 20230722
  Serious: Yes (Hospitalization, Other)
  Sender: FDA-Public Use
  Company Number: JP-BRISTOL-MYERS SQUIBB COMPANY-BMS-2021-115351

PATIENT
  Age: 86 Year
  Sex: Male

DRUGS (9)
  1. YERVOY [Suspect]
     Active Substance: IPILIMUMAB
     Indication: Malignant melanoma
     Dosage: UNK
     Route: 041
     Dates: start: 20171206, end: 20171206
  2. YERVOY [Suspect]
     Active Substance: IPILIMUMAB
     Dosage: UNK
     Route: 041
     Dates: start: 20180104, end: 20180104
  3. YERVOY [Suspect]
     Active Substance: IPILIMUMAB
     Dosage: UNK
     Route: 041
     Dates: start: 20180122, end: 20180122
  4. YERVOY [Suspect]
     Active Substance: IPILIMUMAB
     Dosage: UNK
     Route: 041
     Dates: start: 20180214, end: 20180214
  5. OPDIVO [Suspect]
     Active Substance: NIVOLUMAB
     Indication: Malignant melanoma
     Route: 041
     Dates: start: 201707
  6. MITIGLINIDE [Concomitant]
     Active Substance: MITIGLINIDE
     Indication: Diabetes mellitus
     Dosage: IMMEDIATELY BEFORE EVERY MEAL
     Route: 048
     Dates: start: 20180311
  7. MITIGLINIDE [Concomitant]
     Active Substance: MITIGLINIDE
     Dosage: IMMEDIATELY BEFORE EVERY MEAL
     Route: 048
     Dates: start: 20180316
  8. TRESIBA [Concomitant]
     Active Substance: INSULIN DEGLUDEC
     Indication: Diabetes mellitus
     Dosage: 9 UNITS
     Dates: end: 20180311
  9. TRESIBA [Concomitant]
     Active Substance: INSULIN DEGLUDEC
     Dosage: 9 UNITS
     Dates: start: 20180316

REACTIONS (10)
  - Secondary adrenocortical insufficiency [Unknown]
  - Immune-mediated hypophysitis [Unknown]
  - Pituitary enlargement [Unknown]
  - Adrenocorticotropic hormone deficiency [Unknown]
  - Gonadotrophin deficiency [Unknown]
  - Fatigue [Unknown]
  - Decreased appetite [Recovered/Resolved]
  - Hypoglycaemia [Unknown]
  - Eosinophilia [Unknown]
  - Diarrhoea [Recovered/Resolved]

NARRATIVE: CASE EVENT DATE: 20180312
